FAERS Safety Report 12644906 (Version 1)
Quarter: 2016Q3

REPORT INFORMATION
  Report Type: Spontaneous
  Country: US (occurrence: US)
  Receive Date: 20160811
  Receipt Date: 20160811
  Transmission Date: 20161109
  Serious: Yes (Death)
  Sender: FDA-Public Use
  Company Number: US-JNJFOC-20160807284

PATIENT
  Sex: Female
  Weight: 53 kg

DRUGS (6)
  1. IMBRUVICA [Suspect]
     Active Substance: IBRUTINIB
     Indication: PRODUCT USED FOR UNKNOWN INDICATION
     Route: 048
     Dates: start: 20160702, end: 201607
  2. ALLOPURINOL. [Concomitant]
     Active Substance: ALLOPURINOL
  3. PREDNISONE. [Concomitant]
     Active Substance: PREDNISONE
  4. ACYCLOVIR. [Concomitant]
     Active Substance: ACYCLOVIR
  5. LORAZEPAM. [Concomitant]
     Active Substance: LORAZEPAM
  6. TEMAZEPAM. [Concomitant]
     Active Substance: TEMAZEPAM

REACTIONS (1)
  - Death [Fatal]
